FAERS Safety Report 6454036-X (Version None)
Quarter: 2009Q4

REPORT INFORMATION
  Report Type: 
  Country: None (occurrence: None)
  Receive Date: 20091124
  Receipt Date: 20091116
  Transmission Date: 20100525
  Serious: Yes (Hospitalization)
  Sender: FDA-Public Use
  Company Number: A0822180A

PATIENT
  Sex: Female

DRUGS (6)
  1. LAMICTAL [Suspect]
     Indication: BIPOLAR II DISORDER
     Dosage: 300MG PER DAY
     Route: 065
     Dates: start: 20060101, end: 20061011
  2. WELLBUTRIN [Suspect]
     Indication: BIPOLAR II DISORDER
     Dosage: 150MG PER DAY
     Route: 048
     Dates: start: 20061012, end: 20061012
  3. LEXAPRO [Suspect]
     Indication: DEPRESSION
     Dosage: 30MG PER DAY
     Route: 048
     Dates: start: 20061010, end: 20081101
  4. SEROQUEL [Suspect]
     Indication: BIPOLAR II DISORDER
     Route: 048
     Dates: start: 20061010, end: 20061010
  5. RISPERDAL [Suspect]
     Indication: BIPOLAR II DISORDER
     Dosage: .5MG TWICE PER DAY
     Route: 048
     Dates: start: 20061016
  6. ZYRTEC-D 12 HOUR [Concomitant]

REACTIONS (7)
  - AGITATION [None]
  - AKATHISIA [None]
  - CONFUSIONAL STATE [None]
  - DIZZINESS [None]
  - HYPOMANIA [None]
  - SUICIDAL IDEATION [None]
  - SWELLING FACE [None]
